FAERS Safety Report 4531406-8 (Version None)
Quarter: 2004Q4

REPORT INFORMATION
  Report Type: 
  Country: None (occurrence: None)
  Receive Date: 20041216
  Receipt Date: 20041206
  Transmission Date: 20050328
  Serious: Yes (Hospitalization)
  Sender: FDA-Public Use
  Company Number: HQWYE765806DEC04

PATIENT
  Age: 55 Year
  Sex: Female

DRUGS (2)
  1. ZOSYN [Suspect]
     Indication: ABDOMINAL INFECTION
     Dosage: 3.375 G 1X PER 6 HR, INTRAVENOUS
     Route: 042
     Dates: start: 20010610, end: 20010613
  2. AMOXICILLIN W/CLAVULANATE POTASSIUM (AMOXICILLIN/CLAVULANATE POTASSIUM [Suspect]
     Indication: ABDOMINAL INFECTION
     Dosage: 800 MG 2X PER 1 DAY, ORAL
     Route: 048
     Dates: start: 20010613, end: 20010619

REACTIONS (8)
  - ENTEROCOCCAL INFECTION [None]
  - GASTROINTESTINAL DISORDER [None]
  - POST PROCEDURAL COMPLICATION [None]
  - STREPTOCOCCAL INFECTION [None]
  - THROMBOSIS [None]
  - WOUND ABSCESS [None]
  - WOUND DEBRIDEMENT [None]
  - WOUND INFECTION [None]
